FAERS Safety Report 7225651-0 (Version None)
Quarter: 2011Q1

REPORT INFORMATION
  Report Type: 
  Country: None (occurrence: None)
  Receive Date: 20110107
  Receipt Date: 20110107
  Transmission Date: 20110831
  Serious: Yes (Other)
  Sender: FDA-Public Use
  Company Number: None

PATIENT
  Age: 46 Year
  Sex: Male

DRUGS (6)
  1. DARUNAVIR ETHANOLATE [Suspect]
     Indication: HIV INFECTION
     Dosage: 600 MG BID PO
     Route: 048
  2. ETRAVIRINE [Suspect]
  3. RALTEGRAVIR [Suspect]
  4. TRUVADA [Suspect]
  5. DAPSONE [Concomitant]
  6. DIAZEPAM [Concomitant]

REACTIONS (1)
  - RASH [None]
